FAERS Safety Report 7443909-7 (Version None)
Quarter: 2011Q2

REPORT INFORMATION
  Report Type: 
  Country: None (occurrence: None)
  Receive Date: 20110429
  Receipt Date: 20110419
  Transmission Date: 20111010
  Serious: Yes (Hospitalization, Disabling, Other)
  Sender: FDA-Public Use
  Company Number: AU-PAR PHARMACEUTICAL, INC-2011SCPR002913

PATIENT

DRUGS (2)
  1. VALPROIC ACID [Suspect]
     Indication: BIPOLAR DISORDER
     Dosage: 4 G, UNKNOWN
     Route: 065
  2. DIAZEPAM [Suspect]
     Indication: INSOMNIA
     Dosage: 75 MG, UNK
     Route: 065

REACTIONS (8)
  - CEREBRAL INFARCTION [None]
  - INTENTIONAL OVERDOSE [None]
  - BRAIN OEDEMA [None]
  - BRAIN HERNIATION [None]
  - OPTIC NEUROPATHY [None]
  - RESPIRATORY DEPRESSION [None]
  - ENCEPHALOPATHY [None]
  - HYPERAMMONAEMIA [None]
